FAERS Safety Report 24829155 (Version 1)
Quarter: 2025Q1

REPORT INFORMATION
  Report Type: Spontaneous
  Country: JP (occurrence: JP)
  Receive Date: 20250110
  Receipt Date: 20250110
  Transmission Date: 20250409
  Serious: Yes (Hospitalization, Other)
  Sender: GLAXOSMITHKLINE
  Company Number: JP-GSK-JP2025JPN001190

PATIENT

DRUGS (1)
  1. LAMICTAL [Suspect]
     Active Substance: LAMOTRIGINE
     Indication: Bipolar disorder
     Dosage: 25 MG, QD

REACTIONS (11)
  - Drug reaction with eosinophilia and systemic symptoms [Unknown]
  - Erythema multiforme [Unknown]
  - Hepatic failure [Unknown]
  - Gastric ulcer [Unknown]
  - Pyrexia [Unknown]
  - Rash [Unknown]
  - Swelling face [Unknown]
  - Erythema [Unknown]
  - Liver disorder [Recovering/Resolving]
  - Cytomegalovirus infection [Unknown]
  - Condition aggravated [Unknown]
